FAERS Safety Report 8178737-0 (Version None)
Quarter: 2012Q1

REPORT INFORMATION
  Report Type: 
  Country: None (occurrence: None)
  Receive Date: 20120301
  Receipt Date: 20120301
  Transmission Date: 20120608
  Serious: No
  Sender: FDA-Public Use
  Company Number: None

PATIENT
  Age: 16 Year
  Sex: Male

DRUGS (1)
  1. AZITHROMYCIN [Suspect]
     Indication: SINUSITIS
     Dosage: 250MG
     Route: 048
     Dates: start: 20120220, end: 20120220

REACTIONS (5)
  - URTICARIA [None]
  - FLUSHING [None]
  - RASH GENERALISED [None]
  - PRURITUS [None]
  - VOMITING [None]
